FAERS Safety Report 10308375 (Version 1)
Quarter: 2014Q3

REPORT INFORMATION
  Report Type: Spontaneous
  Country: FR (occurrence: FR)
  Receive Date: 20140716
  Receipt Date: 20140716
  Transmission Date: 20150326
  Serious: Yes (Hospitalization)
  Sender: FDA-Public Use
  Company Number: FR-PFIZER INC-2014193751

PATIENT
  Age: 59 Year
  Sex: Male

DRUGS (2)
  1. METRONIDAZOLE ^BRAUN^ [Suspect]
     Active Substance: METRONIDAZOLE
     Indication: BACTERIAL SEPSIS
     Dosage: UNK
     Dates: start: 201406, end: 20140616
  2. ZYVOXID [Suspect]
     Active Substance: LINEZOLID
     Indication: BACTERIAL SEPSIS
     Dosage: UNK
     Route: 042
     Dates: start: 201406, end: 20140616

REACTIONS (1)
  - Dermatitis exfoliative [Recovered/Resolved]

NARRATIVE: CASE EVENT DATE: 20140614
